FAERS Safety Report 14167167 (Version 1)
Quarter: 2017Q4

REPORT INFORMATION
  Report Type: Spontaneous
  Country: AU (occurrence: AU)
  Receive Date: 20171108
  Receipt Date: 20171108
  Transmission Date: 20180321
  Serious: Yes (Life-Threatening, Hospitalization, Other)
  Sender: FDA-Public Use
  Company Number: AU-SUN PHARMACEUTICAL INDUSTRIES LTD-2017R1-154136

PATIENT
  Age: 47 Year
  Sex: Male

DRUGS (1)
  1. CLOZAPINE. [Suspect]
     Active Substance: CLOZAPINE
     Indication: SCHIZOPHRENIA
     Route: 065

REACTIONS (13)
  - Hyponatraemia [Unknown]
  - Pulmonary embolism [Unknown]
  - Tachycardia [Unknown]
  - Blood creatine phosphokinase increased [Unknown]
  - Troponin increased [Unknown]
  - Systemic inflammatory response syndrome [Unknown]
  - Left ventricular failure [Unknown]
  - Pyrexia [Unknown]
  - Myocarditis [Unknown]
  - Hypotension [Unknown]
  - Pleural effusion [Unknown]
  - Congestive cardiomyopathy [Unknown]
  - Tachypnoea [Unknown]
